FAERS Safety Report 7755208-4 (Version None)
Quarter: 2011Q3

REPORT INFORMATION
  Report Type: 
  Country: None (occurrence: None)
  Receive Date: 20110916
  Receipt Date: 20110818
  Transmission Date: 20111222
  Serious: Yes (Hospitalization)
  Sender: FDA-Public Use
  Company Number: US-GLAXOSMITHKLINE-A0941544A

PATIENT
  Age: 68 Year
  Sex: Male

DRUGS (8)
  1. ATIVAN [Concomitant]
  2. VITAMIN E [Concomitant]
  3. PROMACTA [Suspect]
     Indication: IDIOPATHIC THROMBOCYTOPENIC PURPURA
     Dosage: 50MG PER DAY
     Route: 048
     Dates: start: 20090801
  4. NEURONTIN [Concomitant]
  5. COUMADIN [Concomitant]
  6. MULTI-VITAMIN [Concomitant]
  7. LASIX [Concomitant]
  8. PREDNISONE [Concomitant]

REACTIONS (1)
  - PULMONARY THROMBOSIS [None]
